FAERS Safety Report 17173274 (Version 1)
Quarter: 2019Q4

REPORT INFORMATION
  Report Type: Spontaneous
  Country: US (occurrence: US)
  Receive Date: 20191219
  Receipt Date: 20191219
  Transmission Date: 20200122
  Serious: No
  Sender: FDA-Public Use
  Company Number: US-SUNOVION-2019SUN005407

PATIENT
  Age: 57 Year
  Sex: Male
  Weight: 181.41 kg

DRUGS (1)
  1. LATUDA [Suspect]
     Active Substance: LURASIDONE HYDROCHLORIDE
     Indication: SCHIZOAFFECTIVE DISORDER
     Dosage: 80 MG, HS
     Route: 048

REACTIONS (3)
  - Off label use [Unknown]
  - Hyperphagia [Unknown]
  - Weight increased [Unknown]
